FAERS Safety Report 25840435 (Version 1)
Quarter: 2025Q3

REPORT INFORMATION
  Report Type: Spontaneous
  Country: US (occurrence: US)
  Receive Date: 20250924
  Receipt Date: 20250924
  Transmission Date: 20251021
  Serious: No
  Sender: ABBVIE
  Company Number: US-ABBVIE-6464935

PATIENT

DRUGS (1)
  1. LINZESS [Suspect]
     Active Substance: LINACLOTIDE
     Indication: Constipation
     Route: 048

REACTIONS (5)
  - Chills [Unknown]
  - Headache [Unknown]
  - Constipation [Not Recovered/Not Resolved]
  - Malaise [Unknown]
  - Discouragement [Unknown]

NARRATIVE: CASE EVENT DATE: 20250101
